FAERS Safety Report 4475726-4 (Version None)
Quarter: 2004Q4

REPORT INFORMATION
  Report Type: 
  Country: None (occurrence: None)
  Receive Date: 20041015
  Receipt Date: 20040930
  Transmission Date: 20050328
  Serious: Yes (Hospitalization)
  Sender: FDA-Public Use
  Company Number: DE-AMGEN-UK093866

PATIENT
  Sex: Female
  Weight: 74 kg

DRUGS (4)
  1. NEUPOGEN [Suspect]
     Indication: CHEMOTHERAPY
     Route: 065
     Dates: start: 20040910
  2. FLUOROURACIL [Suspect]
     Dates: start: 20040902
  3. EPIRUBICIN [Suspect]
     Dates: start: 20040902
  4. CYCLOPHOSPHAMIDE [Suspect]
     Dates: start: 20040902

REACTIONS (2)
  - PANCYTOPENIA [None]
  - PYREXIA [None]
